FAERS Safety Report 24179490 (Version 4)
Quarter: 2024Q3

REPORT INFORMATION
  Report Type: Spontaneous
  Country: US (occurrence: US)
  Receive Date: 20240806
  Receipt Date: 20240909
  Transmission Date: 20241017
  Serious: No
  Sender: PFIZER
  Company Number: US-PFIZER INC-PV202400100631

PATIENT
  Age: 29 Year
  Sex: Male
  Weight: 88.7 kg

DRUGS (15)
  1. HEPARIN SODIUM [Suspect]
     Active Substance: HEPARIN SODIUM
     Indication: Jugular vein thrombosis
     Dosage: 40 UNITS/KG BOLUS; CONTINUOUS INFUSION AT 22 UNITS/KG/HR (TITRATED FROM 18 UNITS/KG/HR)
     Route: 042
     Dates: start: 20240608
  2. HEPARIN SODIUM [Suspect]
     Active Substance: HEPARIN SODIUM
     Dosage: 40 UNITS/KG BOLUS; CONTINUOUS INFUSION AT 22 UNITS/KG/HR (TITRATED FROM 18 UNITS/KG/HR)
     Route: 042
     Dates: start: 20240608
  3. HEPARIN SODIUM [Suspect]
     Active Substance: HEPARIN SODIUM
     Dosage: 40 UNITS/KG BOLUS; CONTINUOUS INFUSION AT 22 UNITS/KG/HR (TITRATED FROM 18 UNITS/KG/HR)
     Route: 042
     Dates: start: 20240609
  4. HEPARIN SODIUM [Suspect]
     Active Substance: HEPARIN SODIUM
     Dosage: 40 UNITS/KG BOLUS; CONTINUOUS INFUSION AT 22 UNITS/KG/HR (TITRATED FROM 18 UNITS/KG/HR)
     Route: 042
     Dates: start: 20240609
  5. HEPARIN SODIUM [Suspect]
     Active Substance: HEPARIN SODIUM
     Dosage: 40 UNITS/KG BOLUS; CONTINUOUS INFUSION AT 22 UNITS/KG/HR (TITRATED FROM 18 UNITS/KG/HR)
     Route: 042
     Dates: start: 20240614
  6. HEPARIN SODIUM [Suspect]
     Active Substance: HEPARIN SODIUM
     Dosage: 40 UNITS/KG BOLUS; CONTINUOUS INFUSION AT 22 UNITS/KG/HR (TITRATED FROM 18 UNITS/KG/HR)
     Route: 042
     Dates: start: 20240615
  7. APIXABAN [Suspect]
     Active Substance: APIXABAN
     Dosage: 5 MG, 2X/DAY
     Dates: start: 202406
  8. HEPARIN [Suspect]
     Active Substance: HEPARIN SODIUM
     Dosage: UNK
  9. CEFTRIAXONE [Concomitant]
     Active Substance: CEFTRIAXONE\CEFTRIAXONE SODIUM
     Dosage: 2G Q24H (EVERY 24 HOURS)
  10. BUPROPION HYDROCHLORIDE [Concomitant]
     Active Substance: BUPROPION HYDROCHLORIDE
     Dosage: 200 MG,Q12H (EVERY 12 HOURS)
  11. METRONIDAZOLE [Concomitant]
     Active Substance: METRONIDAZOLE
     Dosage: 500 MG Q12H (EVERY 12 HOURS)
  12. VANCOMYCIN [Concomitant]
     Active Substance: VANCOMYCIN
     Dosage: 1G Q8H (EVERY 8 HOURS)
  13. DEXAMETHASONE [Concomitant]
     Active Substance: DEXAMETHASONE
     Dosage: FOR CYCLE 1
  14. FLUOROURACIL [Concomitant]
     Active Substance: FLUOROURACIL
     Dosage: FOR CYCLE 1
  15. OXALIPLATIN [Concomitant]
     Active Substance: OXALIPLATIN
     Dosage: FOR CYCLE 1

REACTIONS (1)
  - Drug ineffective [Unknown]

NARRATIVE: CASE EVENT DATE: 20240608
